FAERS Safety Report 6955485-3 (Version None)
Quarter: 2010Q3

REPORT INFORMATION
  Report Type: 
  Country: None (occurrence: None)
  Receive Date: 20100830
  Receipt Date: 20100818
  Transmission Date: 20110219
  Serious: Yes (Other)
  Sender: FDA-Public Use
  Company Number: BR-PFIZER INC-2010103895

PATIENT
  Age: 26 Year
  Sex: Female
  Weight: 64 kg

DRUGS (1)
  1. VIBRAMICINA [Suspect]
     Indication: UTERINE INFLAMMATION
     Dosage: 100 MG, 2X/DAY
     Route: 048
     Dates: start: 20100812, end: 20100818

REACTIONS (1)
  - MENSTRUATION DELAYED [None]
